FAERS Safety Report 5696551-2 (Version None)
Quarter: 2008Q2

REPORT INFORMATION
  Report Type: 
  Country: None (occurrence: None)
  Receive Date: 20080404
  Receipt Date: 20080404
  Transmission Date: 20081010
  Serious: Yes (Life-Threatening)
  Sender: FDA-Public Use
  Company Number: None

PATIENT
  Age: 58 Year
  Sex: Female
  Weight: 156.491 kg

DRUGS (1)
  1. NEXAVAR [Suspect]
     Indication: METASTASES TO KIDNEY
     Dosage: ONE TABLET TWICE PER DAY PO
     Route: 048
     Dates: start: 20061224, end: 20070705

REACTIONS (3)
  - DIARRHOEA [None]
  - DRUG INEFFECTIVE [None]
  - INTESTINAL PERFORATION [None]
